FAERS Safety Report 20108347 (Version 1)
Quarter: 2021Q4

REPORT INFORMATION
  Report Type: Report from Study
  Country: US (occurrence: US)
  Receive Date: 20211124
  Receipt Date: 20211124
  Transmission Date: 20220303
  Serious: Yes (Other)
  Sender: FDA-Public Use
  Company Number: US-BIOCRYST-2021BCR00510

PATIENT
  Age: 81 Year
  Sex: Male

DRUGS (2)
  1. ORLADEYO [Suspect]
     Active Substance: BEROTRALSTAT HYDROCHLORIDE
     Indication: Hereditary angioedema
     Dosage: 150 MG, 1X/DAY
     Route: 048
     Dates: start: 20210603, end: 202111
  2. INSULIN ASPRO [Concomitant]

REACTIONS (3)
  - Arrhythmia [Recovered/Resolved]
  - Chest pain [Recovered/Resolved]
  - Diaphragmalgia [Recovered/Resolved]

NARRATIVE: CASE EVENT DATE: 20211101
